FAERS Safety Report 14537421 (Version 2)
Quarter: 2018Q1

REPORT INFORMATION
  Report Type: Report from Study
  Country: US (occurrence: US)
  Receive Date: 20180215
  Receipt Date: 20180222
  Transmission Date: 20180509
  Serious: Yes (Death, Hospitalization)
  Sender: FDA-Public Use
  Company Number: US-ACTELION-A-US2017-148379

PATIENT
  Age: 72 Year
  Sex: Female
  Weight: 95.24 kg

DRUGS (3)
  1. OPSUMIT [Suspect]
     Active Substance: MACITENTAN
     Indication: PULMONARY HYPERTENSION
     Dosage: 10 MG, QD
     Route: 048
  2. TYVASO [Suspect]
     Active Substance: TREPROSTINIL
     Indication: PRODUCT USED FOR UNKNOWN INDICATION
     Dosage: UNK
     Route: 065
  3. REVATIO [Concomitant]
     Active Substance: SILDENAFIL CITRATE

REACTIONS (7)
  - Therapy non-responder [Unknown]
  - Diarrhoea [Unknown]
  - Productive cough [Unknown]
  - Dyspnoea [Unknown]
  - Right ventricular failure [Fatal]
  - Condition aggravated [Unknown]
  - Cough [Unknown]

NARRATIVE: CASE EVENT DATE: 20180129
